FAERS Safety Report 9938566 (Version 1)
Quarter: 2014Q1

REPORT INFORMATION
  Report Type: Report from Study
  Country: US (occurrence: US)
  Receive Date: 20140303
  Receipt Date: 20140303
  Transmission Date: 20141002
  Serious: Yes (Other)
  Sender: FDA-Public Use
  Company Number: US-ROCHE-1354930

PATIENT
  Age: 56 Year
  Sex: Female
  Weight: 43.13 kg

DRUGS (12)
  1. AVASTIN [Suspect]
     Indication: METASTASES TO PERITONEUM
     Route: 041
  2. AVASTIN [Suspect]
     Indication: METASTASES TO LUNG
  3. PEPCID [Concomitant]
     Route: 048
     Dates: start: 20130530
  4. REGLAN [Concomitant]
     Route: 048
     Dates: start: 20130530
  5. BENADRYL (UNITED STATES) [Concomitant]
     Route: 042
     Dates: start: 20130531
  6. BENADRYL (UNITED STATES) [Concomitant]
     Route: 048
  7. ZOFRAN [Concomitant]
     Route: 042
     Dates: start: 20130531
  8. DECADRON [Concomitant]
     Route: 042
     Dates: start: 20130531
  9. DECADRON [Concomitant]
     Route: 042
  10. DOXIL (UNITED STATES) [Concomitant]
     Indication: OVARIAN CANCER METASTATIC
     Dosage: 30MG/M2
     Route: 042
     Dates: start: 20130510
  11. TAXOL [Concomitant]
     Route: 065
  12. TAXOL [Concomitant]
     Dosage: PAST DRUG THERAPY
     Route: 065

REACTIONS (6)
  - Blood pressure increased [Recovered/Resolved]
  - Constipation [Recovered/Resolved]
  - Muscle tightness [Recovered/Resolved]
  - Muscular weakness [Unknown]
  - Hypoaesthesia [Unknown]
  - Cough [Unknown]
